FAERS Safety Report 7766858-3 (Version None)
Quarter: 2011Q3

REPORT INFORMATION
  Report Type: 
  Country: None (occurrence: None)
  Receive Date: 20110922
  Receipt Date: 20110919
  Transmission Date: 20111222
  Serious: No
  Sender: FDA-Public Use
  Company Number: US-PFIZER INC-2011221978

PATIENT
  Sex: Female
  Weight: 50.794 kg

DRUGS (1)
  1. ADVIL LIQUI-GELS [Suspect]
     Indication: HEADACHE
     Dosage: 200 MG, UNK
     Dates: start: 20110917, end: 20110918

REACTIONS (2)
  - VOMITING [None]
  - NAUSEA [None]
